FAERS Safety Report 13084336 (Version 1)
Quarter: 2017Q1

REPORT INFORMATION
  Report Type: Spontaneous
  Country: US (occurrence: US)
  Receive Date: 20170104
  Receipt Date: 20170104
  Transmission Date: 20170428
  Serious: No
  Sender: FDA-Public Use
  Company Number: None

PATIENT

DRUGS (2)
  1. OXYBUTYNIN CHLORIDE. [Suspect]
     Active Substance: OXYBUTYNIN CHLORIDE
     Route: 048
  2. OXYBUTYNIN ER [Suspect]
     Active Substance: OXYBUTYNIN
     Route: 048

REACTIONS (1)
  - Drug dispensing error [None]
